FAERS Safety Report 8959188 (Version 2)
Quarter: 2012Q4

REPORT INFORMATION
  Report Type: Report from Study
  Country: US (occurrence: US)
  Receive Date: 20121212
  Receipt Date: 20121218
  Transmission Date: 20130627
  Serious: Yes (Hospitalization)
  Sender: FDA-Public Use
  Company Number: US-ABBOTT-12P-163-1017245-00

PATIENT
  Age: 23 Year
  Sex: Female

DRUGS (10)
  1. HUMIRA [Suspect]
     Indication: RHEUMATOID ARTHRITIS
     Dates: start: 20100930
  2. SEROQUEL [Concomitant]
     Indication: POST-TRAUMATIC STRESS DISORDER
  3. XANAX [Concomitant]
     Indication: POST-TRAUMATIC STRESS DISORDER
  4. ADVAIR [Concomitant]
     Indication: DYSPNOEA
  5. PROAIR [Concomitant]
     Indication: PRODUCT USED FOR UNKNOWN INDICATION
  6. ANTIBIOTIC [Concomitant]
     Indication: PRODUCT USED FOR UNKNOWN INDICATION
  7. VICODIN [Concomitant]
     Indication: PLEURITIC PAIN
  8. VICODIN [Concomitant]
     Indication: PLEURISY
  9. AZITHROMYCIN [Concomitant]
     Indication: PRODUCT USED FOR UNKNOWN INDICATION
  10. CHERATUSSIN [Concomitant]
     Indication: COUGH

REACTIONS (22)
  - Pleurisy [Not Recovered/Not Resolved]
  - Injection site pain [Unknown]
  - Post-traumatic stress disorder [Unknown]
  - Vomiting [Unknown]
  - Weight decreased [Unknown]
  - Asthenia [Unknown]
  - Bronchitis [Unknown]
  - Chest pain [Unknown]
  - Hypertension [Unknown]
  - Respiratory tract congestion [Unknown]
  - Dyspnoea [Unknown]
  - Cough [Unknown]
  - Increased upper airway secretion [Unknown]
  - Oropharyngeal pain [Unknown]
  - Chest pain [Unknown]
  - Hypoaesthesia [Unknown]
  - Paraesthesia [Unknown]
  - Muscular weakness [Unknown]
  - Fatigue [Unknown]
  - Rheumatoid arthritis [Unknown]
  - Insomnia [Unknown]
  - Productive cough [Unknown]
